FAERS Safety Report 5150317-0 (Version None)
Quarter: 2006Q4

REPORT INFORMATION
  Report Type: 
  Country: None (occurrence: None)
  Receive Date: 20061108
  Receipt Date: 20061019
  Transmission Date: 20070319
  Serious: Yes (Hospitalization, Other)
  Sender: FDA-Public Use
  Company Number: CA-2006-031980

PATIENT
  Age: 54 Year
  Sex: Female
  Weight: 48 kg

DRUGS (1)
  1. BETASERON [Suspect]
     Indication: RELAPSING-REMITTING MULTIPLE SCLEROSIS
     Dosage: 8 MIU, EVERY 2D, SUBCUTANEOUS
     Route: 058
     Dates: start: 20060328, end: 20060701

REACTIONS (5)
  - INJECTION SITE CELLULITIS [None]
  - INJECTION SITE REACTION [None]
  - NECROTISING FASCIITIS [None]
  - RENAL FAILURE [None]
  - RENAL FAILURE ACUTE [None]
